FAERS Safety Report 26138045 (Version 1)
Quarter: 2025Q4

REPORT INFORMATION
  Report Type: Spontaneous
  Country: JP (occurrence: JP)
  Receive Date: 20251210
  Receipt Date: 20251210
  Transmission Date: 20260118
  Serious: Yes (Life-Threatening, Hospitalization)
  Sender: ACCORD
  Company Number: JP-MLMSERVICE-20251120-PI717967-00306-1

PATIENT
  Age: 70 Year
  Sex: Male

DRUGS (2)
  1. MYCOPHENOLATE MOFETIL [Suspect]
     Active Substance: MYCOPHENOLATE MOFETIL
     Indication: Immunosuppressant drug therapy
     Dosage: LONG-TERM
     Route: 048
  2. TACROLIMUS [Suspect]
     Active Substance: TACROLIMUS
     Indication: Immunosuppressant drug therapy
     Dosage: LONG-TERM
     Route: 048

REACTIONS (2)
  - Campylobacter bacteraemia [Recovered/Resolved]
  - Meningitis bacterial [Recovered/Resolved]
